FAERS Safety Report 4715616-2 (Version None)
Quarter: 2005Q3

REPORT INFORMATION
  Report Type: 
  Country: None (occurrence: None)
  Receive Date: 20050718
  Receipt Date: 20050609
  Transmission Date: 20060218
  Serious: Yes (Hospitalization)
  Sender: FDA-Public Use
  Company Number: FR-BRISTOL-MYERS SQUIBB COMPANY-12999785

PATIENT
  Age: 40 Year
  Sex: Female
  Weight: 138 kg

DRUGS (4)
  1. TAXOL [Suspect]
     Indication: ADENOCARCINOMA OF THE CERVIX
     Route: 042
     Dates: start: 20050411, end: 20050411
  2. PARAPLATIN [Suspect]
     Indication: ADENOCARCINOMA OF THE CERVIX
     Route: 042
     Dates: start: 20050411, end: 20050411
  3. FARMORUBICIN [Suspect]
     Indication: ADENOCARCINOMA OF THE CERVIX
     Route: 042
     Dates: start: 20050411, end: 20050411
  4. FRAXIPARINE [Suspect]
     Route: 058
     Dates: start: 20050421, end: 20050421

REACTIONS (7)
  - ANOREXIA [None]
  - DIARRHOEA [None]
  - HAEMOGLOBIN DECREASED [None]
  - HYPOKALAEMIA [None]
  - THROMBOCYTOPENIA [None]
  - VOMITING [None]
  - WEIGHT DECREASED [None]
